FAERS Safety Report 24241856 (Version 1)
Quarter: 2024Q3

REPORT INFORMATION
  Report Type: Spontaneous
  Country: US (occurrence: US)
  Receive Date: 20240823
  Receipt Date: 20240823
  Transmission Date: 20241016
  Serious: No
  Sender: ABBVIE
  Company Number: US-ABBVIE-5888489

PATIENT

DRUGS (4)
  1. BOTOX [Suspect]
     Active Substance: ONABOTULINUMTOXINA
     Indication: Skin wrinkling
     Dosage: TIME INTERVAL: AS NECESSARY: DOSE: 6 UNITS
     Route: 065
     Dates: start: 20240729, end: 20240729
  2. BOTOX [Suspect]
     Active Substance: ONABOTULINUMTOXINA
     Indication: Skin wrinkling
     Dosage: TIME INTERVAL: AS NECESSARY: DOSE: 6 UNITS
     Route: 065
     Dates: start: 20240729, end: 20240729
  3. BOTOX [Suspect]
     Active Substance: ONABOTULINUMTOXINA
     Indication: Skin wrinkling
     Dosage: TIME INTERVAL: AS NECESSARY: DOSE: 56 UNITS
     Route: 065
     Dates: start: 20240729, end: 20240729
  4. BOTOX [Suspect]
     Active Substance: ONABOTULINUMTOXINA
     Indication: Skin wrinkling
     Dosage: TIME INTERVAL: AS NECESSARY: DOSE: 80 UNITS
     Route: 065
     Dates: start: 20240729, end: 20240729

REACTIONS (2)
  - Drug resistance [Unknown]
  - Off label use [Unknown]

NARRATIVE: CASE EVENT DATE: 20240101
